FAERS Safety Report 12747163 (Version 1)
Quarter: 2016Q3

REPORT INFORMATION
  Report Type: Spontaneous
  Country: AU (occurrence: AU)
  Receive Date: 20160915
  Receipt Date: 20160915
  Transmission Date: 20161109
  Serious: Yes (Hospitalization, Other)
  Sender: FDA-Public Use
  Company Number: AU-MYLANLABS-2016M1039304

PATIENT

DRUGS (9)
  1. WARFARIN [Concomitant]
     Active Substance: WARFARIN
     Route: 065
  2. FRUSEMIDE                          /00032601/ [Concomitant]
     Active Substance: FUROSEMIDE
     Route: 065
  3. NEBIVOLOL. [Suspect]
     Active Substance: NEBIVOLOL
     Indication: PRODUCT USED FOR UNKNOWN INDICATION
     Route: 065
  4. QUINAPRIL. [Concomitant]
     Active Substance: QUINAPRIL
     Route: 065
  5. ATORVASTATIN [Concomitant]
     Active Substance: ATORVASTATIN
     Route: 065
  6. PREGABALIN. [Suspect]
     Active Substance: PREGABALIN
     Indication: PRODUCT USED FOR UNKNOWN INDICATION
     Route: 065
  7. DOXEPIN [Suspect]
     Active Substance: DOXEPIN
     Indication: PRODUCT USED FOR UNKNOWN INDICATION
     Route: 065
  8. METHENAMINE HIPPURATE. [Concomitant]
     Active Substance: METHENAMINE HIPPURATE
     Route: 065
  9. TRIMETHOPRIM. [Suspect]
     Active Substance: TRIMETHOPRIM
     Indication: URINARY TRACT INFECTION
     Route: 065

REACTIONS (2)
  - Acute kidney injury [Recovered/Resolved]
  - Hyperkalaemia [Recovered/Resolved]
